FAERS Safety Report 25131837 (Version 3)
Quarter: 2025Q3

REPORT INFORMATION
  Report Type: Spontaneous
  Country: US (occurrence: US)
  Receive Date: 20250327
  Receipt Date: 20250923
  Transmission Date: 20251021
  Serious: No
  Sender: ELI LILLY AND COMPANY
  Company Number: US-ELI_LILLY_AND_COMPANY-US202503019097

PATIENT
  Age: 47 Year
  Sex: Female

DRUGS (7)
  1. EMGALITY [Suspect]
     Active Substance: GALCANEZUMAB-GNLM
     Indication: Product used for unknown indication
     Route: 065
  2. EMGALITY [Suspect]
     Active Substance: GALCANEZUMAB-GNLM
     Indication: Product used for unknown indication
     Route: 065
  3. EMGALITY [Suspect]
     Active Substance: GALCANEZUMAB-GNLM
     Indication: Product used for unknown indication
     Route: 065
  4. EMGALITY [Suspect]
     Active Substance: GALCANEZUMAB-GNLM
     Route: 065
  5. EMGALITY [Suspect]
     Active Substance: GALCANEZUMAB-GNLM
     Route: 065
  6. EMGALITY [Suspect]
     Active Substance: GALCANEZUMAB-GNLM
     Route: 065
  7. EMGALITY [Suspect]
     Active Substance: GALCANEZUMAB-GNLM
     Route: 065

REACTIONS (7)
  - Malaise [Unknown]
  - Increased tendency to bruise [Unknown]
  - Migraine [Unknown]
  - Injection site pain [Unknown]
  - Injection site haemorrhage [Unknown]
  - Injection site bruising [Unknown]
  - Injection site discomfort [Unknown]

NARRATIVE: CASE EVENT DATE: 20250321
